FAERS Safety Report 15122459 (Version 2)
Quarter: 2018Q3

REPORT INFORMATION
  Report Type: Spontaneous
  Country: US (occurrence: US)
  Receive Date: 20180709
  Receipt Date: 20180803
  Transmission Date: 20181010
  Serious: Yes (Other)
  Sender: FDA-Public Use
  Company Number: US-PFIZER INC-2018271253

PATIENT
  Age: 64 Year
  Sex: Female
  Weight: 67.13 kg

DRUGS (10)
  1. FUROSEMIDE. [Concomitant]
     Active Substance: FUROSEMIDE
     Dosage: 20 MG, UNK
  2. PRENATAL VITAMINS [Concomitant]
     Active Substance: VITAMINS
     Dosage: UNK
  3. LIPITOR [Concomitant]
     Active Substance: ATORVASTATIN CALCIUM
     Dosage: 40 MG, 1X/DAY[AT NIGHT]
  4. TRAZODONE [Concomitant]
     Active Substance: TRAZODONE HYDROCHLORIDE
     Dosage: 150 MG, 1X/DAY[AT NIGHT]
  5. BABY ASPIRIN [Concomitant]
     Active Substance: ASPIRIN
     Dosage: 1 DF, UNK
  6. LISINOPRIL. [Concomitant]
     Active Substance: LISINOPRIL
     Dosage: 5 MG, 1X/DAY[IN MORNING]
  7. ZOLOFT [Concomitant]
     Active Substance: SERTRALINE HYDROCHLORIDE
     Dosage: 100 MG, UNK
  8. LORAZEPAM. [Concomitant]
     Active Substance: LORAZEPAM
     Dosage: 1 MG, 3X/DAY
  9. CHANTIX [Suspect]
     Active Substance: VARENICLINE TARTRATE
     Indication: SMOKING CESSATION THERAPY
     Dosage: 1 MG, 2X/DAY
     Route: 048
     Dates: end: 2018
  10. PLAVIX [Suspect]
     Active Substance: CLOPIDOGREL BISULFATE
     Dosage: 75 MG, UNK

REACTIONS (15)
  - Limb injury [Unknown]
  - Limb discomfort [Unknown]
  - Gait disturbance [Recovered/Resolved]
  - Loss of personal independence in daily activities [Recovered/Resolved]
  - Intermittent claudication [Unknown]
  - Intentional product misuse [Unknown]
  - Musculoskeletal discomfort [Unknown]
  - Hair growth abnormal [Unknown]
  - Stress [Unknown]
  - Coagulopathy [Unknown]
  - Wrong technique in product usage process [Unknown]
  - Peripheral arterial occlusive disease [Unknown]
  - Contusion [Unknown]
  - Angiopathy [Unknown]
  - Nerve compression [Unknown]

NARRATIVE: CASE EVENT DATE: 2018
